FAERS Safety Report 14950976 (Version 1)
Quarter: 2018Q2

REPORT INFORMATION
  Report Type: Spontaneous
  Country: FR (occurrence: FR)
  Receive Date: 20180530
  Receipt Date: 20180530
  Transmission Date: 20180711
  Serious: Yes (Death)
  Sender: FDA-Public Use
  Company Number: FR-TEVA-2018-FR-899591

PATIENT
  Age: 47 Year
  Sex: Male
  Weight: 94 kg

DRUGS (11)
  1. XOLAAM [Concomitant]
     Active Substance: ALUMINUM HYDROXIDE\MAGNESIUM HYDROXIDE
     Route: 048
  2. PROINULINE SERB 25 POUR CENT, SOLUTION INJECTABLE (I.V.) [Suspect]
     Active Substance: SINISTRIN
     Indication: GLOMERULAR FILTRATION RATE
     Route: 042
     Dates: start: 20180309, end: 20180309
  3. INEXIUM [Concomitant]
     Active Substance: ESOMEPRAZOLE
     Dosage: 1 DOSAGE FORMS DAILY;
     Route: 048
  4. PARACETAMOL [Concomitant]
     Active Substance: ACETAMINOPHEN
     Route: 048
  5. ALDACTONE 50 MG, COMPRIM? PELLICUL? S?CABLE [Concomitant]
     Dosage: 1 DOSAGE FORMS DAILY;
     Route: 048
  6. HAMAMELIS VIRGINIANA POUR PREPARATIONS HOMEOPATHIQUES [Concomitant]
     Dosage: 9 DOSAGE FORMS DAILY;
     Route: 048
  7. PROPRANOLOL [Suspect]
     Active Substance: PROPRANOLOL HYDROCHLORIDE
     Indication: HYPERTENSION
     Dosage: 160 MILLIGRAM DAILY;
     Route: 048
  8. TRIATEC 5 MG, COMPRIM? SECABLE [Concomitant]
     Dosage: 1 DOSAGE FORMS DAILY;
     Route: 048
  9. METFORMINE [Concomitant]
     Active Substance: METFORMIN HYDROCHLORIDE
     Dosage: 2000 MILLIGRAM DAILY;
     Route: 048
  10. KARDEGIC [Concomitant]
     Active Substance: ASPIRIN DL-LYSINE
     Dosage: 1 DOSAGE FORMS DAILY;
     Route: 048
  11. JANUVIA [Concomitant]
     Active Substance: SITAGLIPTIN PHOSPHATE
     Dosage: 1 DOSAGE FORMS DAILY;
     Route: 048

REACTIONS (1)
  - Anaphylactic shock [Fatal]

NARRATIVE: CASE EVENT DATE: 20180309
